FAERS Safety Report 5629768-3 (Version None)
Quarter: 2008Q1

REPORT INFORMATION
  Report Type: 
  Country: None (occurrence: None)
  Receive Date: 20080218
  Receipt Date: 20080213
  Transmission Date: 20080703
  Serious: Yes (Hospitalization, Other)
  Sender: FDA-Public Use
  Company Number: US-ASTRAZENECA-2006UW16475

PATIENT
  Age: 69 Year
  Sex: Female
  Weight: 73.5 kg

DRUGS (4)
  1. ARIMIDEX [Suspect]
     Indication: BREAST CANCER FEMALE
     Route: 048
     Dates: start: 20060201
  2. VITAMIN D [Concomitant]
  3. CALCIUM [Concomitant]
  4. ACTONEL [Concomitant]

REACTIONS (7)
  - ARTHRALGIA [None]
  - BLOOD CHOLESTEROL INCREASED [None]
  - BONE DENSITY DECREASED [None]
  - DIVERTICULITIS [None]
  - MEMORY IMPAIRMENT [None]
  - MYALGIA [None]
  - TENDONITIS [None]
